FAERS Safety Report 4493364-4 (Version None)
Quarter: 2004Q4

REPORT INFORMATION
  Report Type: 
  Country: None (occurrence: None)
  Receive Date: 20041102
  Receipt Date: 20041019
  Transmission Date: 20050328
  Serious: Yes (Other)
  Sender: FDA-Public Use
  Company Number: FABR-10750

PATIENT
  Age: 53 Year
  Sex: Female
  Weight: 136.5327 kg

DRUGS (12)
  1. FABRAZYME [Suspect]
     Indication: FABRY'S DISEASE
     Dosage: 3 MG/KG Q2WKS IV
     Route: 042
     Dates: start: 20030519, end: 20030630
  2. FABRAZYME [Suspect]
     Indication: FABRY'S DISEASE
     Dosage: 140 MG Q2WKS IV
     Route: 042
     Dates: start: 20030724, end: 20031002
  3. FABRAZYME [Suspect]
     Indication: FABRY'S DISEASE
     Dosage: 140 MG Q2WKS IV
     Route: 042
     Dates: start: 20040124, end: 20040708
  4. FABRAZYME [Suspect]
     Indication: FABRY'S DISEASE
     Dosage: 140 MG Q2WKS IV
     Route: 042
     Dates: start: 20041018
  5. LASIX [Concomitant]
  6. PROCARDIA XL [Concomitant]
  7. DIOVAN [Concomitant]
  8. BICITRA [Concomitant]
  9. ALLEGRA [Concomitant]
  10. CALCITRIOL [Concomitant]
  11. HEMOCYTE PLUS [Concomitant]
  12. ARANESP [Concomitant]

REACTIONS (3)
  - BLOOD PARATHYROID HORMONE INCREASED [None]
  - CONDITION AGGRAVATED [None]
  - RENAL IMPAIRMENT [None]
